FAERS Safety Report 4759764-X (Version None)
Quarter: 2005Q3

REPORT INFORMATION
  Report Type: 
  Country: None (occurrence: None)
  Receive Date: 20050829
  Receipt Date: 20050706
  Transmission Date: 20060218
  Serious: No
  Sender: FDA-Public Use
  Company Number: S05-USA-03426-01

PATIENT
  Age: 45 Year
  Sex: Female

DRUGS (1)
  1. CAMPRAL [Suspect]
     Indication: ALCOHOLISM
     Dosage: 666 MG TID PO
     Route: 048
     Dates: start: 20050601, end: 20050101

REACTIONS (2)
  - ABDOMINAL DISTENSION [None]
  - FLATULENCE [None]
